FAERS Safety Report 5621898-5 (Version None)
Quarter: 2008Q1

REPORT INFORMATION
  Report Type: 
  Country: None (occurrence: None)
  Receive Date: 20080211
  Receipt Date: 20080102
  Transmission Date: 20080703
  Serious: No
  Sender: FDA-Public Use
  Company Number: US-BRISTOL-MYERS SQUIBB COMPANY-14028682

PATIENT
  Sex: Female

DRUGS (1)
  1. IXEMPRA [Suspect]
     Route: 042

REACTIONS (2)
  - DYSPEPSIA [None]
  - NAUSEA [None]
